FAERS Safety Report 24760897 (Version 1)
Quarter: 2024Q4

REPORT INFORMATION
  Report Type: Spontaneous
  Country: CN (occurrence: CN)
  Receive Date: 20241220
  Receipt Date: 20241220
  Transmission Date: 20250114
  Serious: Yes (Other)
  Sender: NIVAGEN PHARMACEUTICALS INC
  Company Number: CN-NPI-000091

PATIENT
  Age: 67 Year
  Sex: Male

DRUGS (2)
  1. HYDROXYUREA [Concomitant]
     Active Substance: HYDROXYUREA
     Indication: Chronic myeloid leukaemia
     Route: 065
     Dates: start: 20220111, end: 2022
  2. DECITABINE [Suspect]
     Active Substance: DECITABINE
     Indication: Chronic myeloid leukaemia
     Dosage: 25 MG/SQ. METER FOR 4 DAYS AT 4-WEEK INTERVALS
     Route: 042
     Dates: start: 2022, end: 20220613

REACTIONS (2)
  - Chronic myeloid leukaemia [Recovering/Resolving]
  - Drug resistance [Unknown]
